FAERS Safety Report 7770141-X (Version None)
Quarter: 2011Q3

REPORT INFORMATION
  Report Type: 
  Country: None (occurrence: None)
  Receive Date: 20110922
  Receipt Date: 20110225
  Transmission Date: 20111222
  Serious: No
  Sender: FDA-Public Use
  Company Number: US-ASTRAZENECA-2011SE10870

PATIENT
  Age: 52 Year
  Sex: Female
  Weight: 90.7 kg

DRUGS (2)
  1. SEROQUEL [Suspect]
     Indication: INSOMNIA
     Route: 048
     Dates: start: 20070101
  2. SEROQUEL [Suspect]
     Indication: ANXIETY
     Route: 048
     Dates: start: 20070101

REACTIONS (3)
  - FIBROMYALGIA [None]
  - MULTIPLE SCLEROSIS [None]
  - WEIGHT INCREASED [None]
